FAERS Safety Report 8977386 (Version 1)
Quarter: 2012Q4

REPORT INFORMATION
  Report Type: 
  Country: US (occurrence: US)
  Receive Date: 20121220
  Receipt Date: 20121220
  Transmission Date: 20130627
  Serious: Yes (Hospitalization)
  Sender: FDA-Public Use
  Company Number: US-B.I. PHARMACEUTICALS,INC./RIDGEFIELD-2012-BI-03553BP

PATIENT
  Age: 58 Year
  Sex: Male

DRUGS (5)
  1. PRADAXA [Suspect]
     Indication: ATRIAL FLUTTER
     Dosage: 300 mg
     Route: 048
     Dates: start: 201112, end: 20121123
  2. INSULIN [Concomitant]
     Indication: DIABETES MELLITUS
     Route: 058
  3. VITAMIN D [Concomitant]
     Dosage: 1000 U
     Route: 048
  4. METOPROLOL TARTRATE [Concomitant]
     Indication: HEART RATE ABNORMAL
     Dosage: 100 mg
     Route: 048
  5. PRAVACHOL [Concomitant]
     Indication: HYPERLIPIDAEMIA
     Dosage: 80 mg
     Route: 048

REACTIONS (1)
  - Cerebrovascular accident [Not Recovered/Not Resolved]
